FAERS Safety Report 6551636-3 (Version None)
Quarter: 2010Q1

REPORT INFORMATION
  Report Type: 
  Country: None (occurrence: None)
  Receive Date: 20100120
  Receipt Date: 20100107
  Transmission Date: 20100710
  Serious: Yes (Hospitalization)
  Sender: FDA-Public Use
  Company Number: 230133J10USA

PATIENT
  Age: 45 Year
  Sex: Female
  Weight: 89 kg

DRUGS (5)
  1. REBIF [Suspect]
     Indication: MULTIPLE SCLEROSIS
     Dosage: 22 MCG, 3 IN 1 WEEKS, SUBCUTANEOUS; 11 MCG , 3 IN 1 WEEKS, SUBCUTANEOUS
     Route: 058
     Dates: start: 20090901, end: 20091204
  2. REBIF [Suspect]
     Indication: MULTIPLE SCLEROSIS
     Dosage: 22 MCG, 3 IN 1 WEEKS, SUBCUTANEOUS; 11 MCG , 3 IN 1 WEEKS, SUBCUTANEOUS
     Route: 058
     Dates: start: 20091204
  3. AMANTADINE HCL [Concomitant]
  4. VERAPAMIL [Concomitant]
  5. UNSPECIFIED MEDICATION (ALL OTHER THERAPEUTIC PRODUCTS) [Concomitant]

REACTIONS (2)
  - MULTIPLE SCLEROSIS RELAPSE [None]
  - SINUSITIS [None]
